FAERS Safety Report 20033151 (Version 3)
Quarter: 2022Q2

REPORT INFORMATION
  Report Type: Spontaneous
  Country: US (occurrence: US)
  Receive Date: 20211104
  Receipt Date: 20220531
  Transmission Date: 20220721
  Serious: No
  Sender: FDA-Public Use
  Company Number: US-BEH-2021137366

PATIENT
  Age: 54 Year
  Sex: Female

DRUGS (71)
  1. HIZENTRA [Suspect]
     Active Substance: HUMAN IMMUNOGLOBULIN G
     Indication: Selective IgG subclass deficiency
     Dosage: 50 MILLILITER (10 GRAM), QW
     Route: 058
     Dates: start: 20210831
  2. HIZENTRA [Suspect]
     Active Substance: HUMAN IMMUNOGLOBULIN G
     Dosage: 50 MILLILITER (10 GRAM), QW
     Route: 058
     Dates: start: 20210831
  3. ASPIRIN [Concomitant]
     Active Substance: ASPIRIN
     Dosage: 81 MILLIGRAM
  4. CRESTOR [Concomitant]
     Active Substance: ROSUVASTATIN CALCIUM
     Dosage: 20 MILLIGRAM
  5. DULERA [Concomitant]
     Active Substance: FORMOTEROL FUMARATE DIHYDRATE\MOMETASONE FUROATE
  6. HISTEX DM [Concomitant]
  7. HYDROCHLOROTHIAZIDE [Concomitant]
     Active Substance: HYDROCHLOROTHIAZIDE
     Dosage: 12.5 MILLIGRAM
  8. ALBUTEROL\IPRATROPIUM [Concomitant]
     Active Substance: ALBUTEROL\IPRATROPIUM
  9. ISOSORBIDE MONONITRATE [Concomitant]
     Active Substance: ISOSORBIDE MONONITRATE
     Dosage: 30 MILLIGRAM
  10. JANUVIA [Concomitant]
     Active Substance: SITAGLIPTIN PHOSPHATE
     Dosage: 50 MILLIGRAM
  11. CLARITHROMYCIN [Concomitant]
     Active Substance: CLARITHROMYCIN
     Dosage: 100 MILLIGRAM
  12. MESTINON [Concomitant]
     Active Substance: PYRIDOSTIGMINE BROMIDE
     Dosage: 60 MILLIGRAM
  13. MIRAPEX [Concomitant]
     Active Substance: PRAMIPEXOLE DIHYDROCHLORIDE
     Dosage: 0.75 MILLIGRAM
  14. NITROGLYCERIN [Concomitant]
     Active Substance: NITROGLYCERIN
     Dosage: 0.4 MILLIGRAM
  15. PREDNISONE [Concomitant]
     Active Substance: PREDNISONE
     Dosage: 5 MILLIGRAM
  16. OMEPRAZOLE [Concomitant]
     Active Substance: OMEPRAZOLE
     Dosage: 40 MILLIGRAM
  17. QVAR [Concomitant]
     Active Substance: BECLOMETHASONE DIPROPIONATE
     Dosage: UNK
  18. SINGULAIR [Concomitant]
     Active Substance: MONTELUKAST SODIUM
     Dosage: 5 MILLIGRAM
  19. SPIRIVA [Concomitant]
     Active Substance: TIOTROPIUM BROMIDE MONOHYDRATE
  20. VERAPAMIL [Concomitant]
     Active Substance: VERAPAMIL HYDROCHLORIDE
     Dosage: 240 MILLIGRAM
  21. CHOLECALCIFEROL [Concomitant]
     Active Substance: CHOLECALCIFEROL
     Dosage: 400 INTERNATIONAL UNIT
  22. WARFARIN [Concomitant]
     Active Substance: WARFARIN
     Dosage: 5 MILLIGRAM
  23. XELJANZ [Concomitant]
     Active Substance: TOFACITINIB CITRATE
     Dosage: 5 MILLIGRAM
  24. XOPENEX [Concomitant]
     Active Substance: LEVALBUTEROL HYDROCHLORIDE
     Dosage: 0.31 MILLIGRAM
  25. ZETIA [Concomitant]
     Active Substance: EZETIMIBE
     Dosage: 10 MILLIGRAM
  26. ZOFRAN [Concomitant]
     Active Substance: ONDANSETRON HYDROCHLORIDE
     Dosage: 4 MILLIGRAM
  27. ZONEGRAN [Concomitant]
     Active Substance: ZONISAMIDE
     Dosage: 25 MILLIGRAM
  28. BENRALIZUMAB [Concomitant]
     Active Substance: BENRALIZUMAB
  29. GALCANEZUMAB [Concomitant]
     Active Substance: GALCANEZUMAB
  30. PRUCALOPRIDE [Concomitant]
     Active Substance: PRUCALOPRIDE
  31. ACETAZOLAMIDE [Concomitant]
     Active Substance: ACETAZOLAMIDE
  32. ACETAZOLAMIDE [Concomitant]
     Active Substance: ACETAZOLAMIDE
  33. AZITHROMYCIN [Concomitant]
     Active Substance: AZITHROMYCIN
  34. BENZONATATE [Concomitant]
     Active Substance: BENZONATATE
  35. BETAMETH DIPROPIONATE [Concomitant]
  36. BUDESONIDE [Concomitant]
     Active Substance: BUDESONIDE
  37. CLARITHROMYCIN [Concomitant]
     Active Substance: CLARITHROMYCIN
  38. CLOTRIMAZOLE [Concomitant]
     Active Substance: CLOTRIMAZOLE
  39. CODEINE GUAIFENESIN [Concomitant]
     Active Substance: CODEINE PHOSPHATE\GUAIFENESIN
  40. CORLANOR [Concomitant]
     Active Substance: IVABRADINE HYDROCHLORIDE
  41. CORLANOR [Concomitant]
     Active Substance: IVABRADINE HYDROCHLORIDE
  42. DAPSONE [Concomitant]
     Active Substance: DAPSONE
  43. DEPO-MEDROL [Concomitant]
     Active Substance: METHYLPREDNISOLONE ACETATE
  44. GALCANEZUMAB [Concomitant]
     Active Substance: GALCANEZUMAB
  45. EZETIMIBE [Concomitant]
     Active Substance: EZETIMIBE
  46. FOLIC ACID [Concomitant]
     Active Substance: FOLIC ACID
  47. FUROSEMIDE [Concomitant]
     Active Substance: FUROSEMIDE
  48. HYDROCHLOROTHIAZIDE [Concomitant]
     Active Substance: HYDROCHLOROTHIAZIDE
  49. HYDROCODONE BITARTRATE AND ACETAMINOPHEN [Concomitant]
     Active Substance: ACETAMINOPHEN\HYDROCODONE BITARTRATE
  50. HYDROXYZINE HYDROCHLORIDE [Concomitant]
     Active Substance: HYDROXYZINE HYDROCHLORIDE
  51. JANUVIA [Concomitant]
     Active Substance: SITAGLIPTIN PHOSPHATE
  52. KENALOG [Concomitant]
     Active Substance: TRIAMCINOLONE ACETONIDE
  53. METHOCARBAMOL [Concomitant]
     Active Substance: METHOCARBAMOL
  54. METHOTREXATE [Concomitant]
     Active Substance: METHOTREXATE
  55. PRUCALOPRIDE [Concomitant]
     Active Substance: PRUCALOPRIDE
  56. NORTRIPTYLINE [Concomitant]
     Active Substance: NORTRIPTYLINE
  57. NYSTATIN [Concomitant]
     Active Substance: NYSTATIN
  58. POTASSIUM CHLORIDE [Concomitant]
     Active Substance: POTASSIUM CHLORIDE
  59. PRAMIPEXOLE [Concomitant]
     Active Substance: PRAMIPEXOLE
  60. PREDNISONE [Concomitant]
     Active Substance: PREDNISONE
  61. BETAMETHASONE ACETATE\BETAMETHASONE SODIUM PHOSPHATE [Concomitant]
     Active Substance: BETAMETHASONE ACETATE\BETAMETHASONE SODIUM PHOSPHATE
  62. ROSUVASTATIN [Concomitant]
     Active Substance: ROSUVASTATIN
  63. VERAPAMIL [Concomitant]
     Active Substance: VERAPAMIL HYDROCHLORIDE
  64. SPIRONOLACTONE [Concomitant]
     Active Substance: SPIRONOLACTONE
  65. TIZANIDINE [Concomitant]
     Active Substance: TIZANIDINE
  66. UBROGEPANT [Concomitant]
     Active Substance: UBROGEPANT
  67. WARFARIN [Concomitant]
     Active Substance: WARFARIN
  68. XELJANZ [Concomitant]
     Active Substance: TOFACITINIB CITRATE
  69. PREDNISONE [Concomitant]
     Active Substance: PREDNISONE
  70. PREDNISONE [Concomitant]
     Active Substance: PREDNISONE
  71. ZONISAMIDE [Concomitant]
     Active Substance: ZONISAMIDE

REACTIONS (4)
  - Infusion site erythema [Not Recovered/Not Resolved]
  - Infusion site swelling [Not Recovered/Not Resolved]
  - Headache [Unknown]
  - Injection site reaction [Unknown]

NARRATIVE: CASE EVENT DATE: 20210923
